FAERS Safety Report 21478722 (Version 1)
Quarter: 2022Q4

REPORT INFORMATION
  Report Type: Spontaneous
  Country: US (occurrence: US)
  Receive Date: 20221019
  Receipt Date: 20221019
  Transmission Date: 20230113
  Serious: Yes (Other)
  Sender: FDA-Public Use
  Company Number: US-BAXTER-2022BAX021878

PATIENT
  Age: 78 Year
  Sex: Female

DRUGS (2)
  1. NEXTERONE [Suspect]
     Active Substance: AMIODARONE HYDROCHLORIDE
     Indication: Atrial fibrillation
     Route: 065
  2. METOPROLOL [Suspect]
     Active Substance: METOPROLOL
     Route: 065

REACTIONS (4)
  - Syncope [Unknown]
  - Fatigue [Unknown]
  - Decreased appetite [Unknown]
  - Gastrointestinal stoma output increased [Unknown]
